FAERS Safety Report 7628555-4 (Version None)
Quarter: 2011Q3

REPORT INFORMATION
  Report Type: 
  Country: None (occurrence: None)
  Receive Date: 20110711
  Receipt Date: 20110628
  Transmission Date: 20111222
  Serious: Yes (Other)
  Sender: FDA-Public Use
  Company Number: 2011029067

PATIENT
  Age: 18 Year
  Sex: Male
  Weight: 46.7205 kg

DRUGS (14)
  1. HIZENTRA [Suspect]
     Indication: RESPIRATORY DISORDER
     Dosage: (8 G 1X/WEEK, INFUSED 40 ML VIA 2-3 SITES SUBCUTANEOUS), (SUBCUTANEOUS)
     Route: 058
     Dates: start: 20110313
  2. HIZENTRA [Suspect]
     Indication: IMMUNODEFICIENCY
     Dosage: (8 G 1X/WEEK, INFUSED 40 ML VIA 2-3 SITES SUBCUTANEOUS), (SUBCUTANEOUS)
     Route: 058
     Dates: start: 20110313
  3. HIZENTRA [Suspect]
     Indication: RESPIRATORY DISORDER
     Dosage: (8 G 1X/WEEK, INFUSED 40 ML VIA 2-3 SITES SUBCUTANEOUS), (SUBCUTANEOUS)
     Route: 058
     Dates: start: 20110620
  4. HIZENTRA [Suspect]
     Indication: IMMUNODEFICIENCY
     Dosage: (8 G 1X/WEEK, INFUSED 40 ML VIA 2-3 SITES SUBCUTANEOUS), (SUBCUTANEOUS)
     Route: 058
     Dates: start: 20110620
  5. OXYCODONE HCL [Concomitant]
  6. ATIVAN [Concomitant]
  7. NUTROPIN [Concomitant]
  8. ALBUTEROL [Concomitant]
  9. HYDROXYZINE [Concomitant]
  10. ACETAMINOPHEN [Concomitant]
  11. PEPCID [Concomitant]
  12. MULTIVITAMIN (MULTIVITAMIN /00831701/) [Concomitant]
  13. PENTASA [Concomitant]
  14. PREDNISONE [Concomitant]

REACTIONS (4)
  - INFUSION SITE IRRITATION [None]
  - INFUSION SITE INFECTION [None]
  - INFUSION SITE ERYTHEMA [None]
  - INFUSION SITE REACTION [None]
